FAERS Safety Report 8015395-X (Version None)
Quarter: 2011Q4

REPORT INFORMATION
  Report Type: 
  Country: None (occurrence: None)
  Receive Date: 20111230
  Receipt Date: 20111223
  Transmission Date: 20120403
  Serious: Yes (Hospitalization)
  Sender: FDA-Public Use
  Company Number: US-ASTELLAS-2011US008690

PATIENT

DRUGS (2)
  1. TARCEVA [Suspect]
     Indication: PRODUCT USED FOR UNKNOWN INDICATION
     Dosage: 150 MG, UNKNOWN/D
     Route: 048
  2. TARCEVA [Suspect]
     Dosage: 100 MG, UNKNOWN/D
     Route: 048
     Dates: start: 20111223

REACTIONS (1)
  - HOSPITALISATION [None]
